FAERS Safety Report 22032279 (Version 2)
Quarter: 2023Q1

REPORT INFORMATION
  Report Type: Spontaneous
  Country: US (occurrence: US)
  Receive Date: 20230224
  Receipt Date: 20230226
  Transmission Date: 20230418
  Serious: No
  Sender: FDA-Public Use
  Company Number: US-JNJFOC-20230240447

PATIENT
  Sex: Male
  Weight: 104.42 kg

DRUGS (1)
  1. XARELTO [Suspect]
     Active Substance: RIVAROXABAN
     Indication: Heart rate irregular
     Route: 048
     Dates: start: 202209

REACTIONS (2)
  - Product packaging quantity issue [Unknown]
  - Underdose [Unknown]
